FAERS Safety Report 8294490-4 (Version None)
Quarter: 2012Q2

REPORT INFORMATION
  Report Type: 
  Country: None (occurrence: None)
  Receive Date: 20120418
  Receipt Date: 20120413
  Transmission Date: 20120825
  Serious: Yes (Hospitalization)
  Sender: FDA-Public Use
  Company Number: US-INCYTE CORPORATION-2012IN000584

PATIENT
  Sex: Female

DRUGS (4)
  1. JAKAFI [Suspect]
     Indication: MYELOFIBROSIS
     Dosage: UNK
  2. LEVOTHYROXINE SODIUM [Concomitant]
     Dosage: 100 MG, QD
  3. OMEPRAZOLE [Concomitant]
     Dosage: 40 MG, QD
  4. OXYCODONE HCL [Concomitant]
     Dosage: UNK, PRN

REACTIONS (1)
  - UPPER RESPIRATORY TRACT INFECTION [None]
